FAERS Safety Report 6829124-6 (Version None)
Quarter: 2010Q3

REPORT INFORMATION
  Report Type: 
  Country: None (occurrence: None)
  Receive Date: 20100709
  Receipt Date: 20070228
  Transmission Date: 20110219
  Serious: No
  Sender: FDA-Public Use
  Company Number: US-PFIZER INC-2007016256

PATIENT
  Sex: Female
  Weight: 63.5 kg

DRUGS (7)
  1. CHANTIX [Suspect]
     Indication: SMOKING CESSATION THERAPY
     Dates: start: 20070216, end: 20070218
  2. CYMBALTA [Concomitant]
  3. ACIPHEX [Concomitant]
  4. CALCIUM CARBONATE [Concomitant]
     Indication: BONE DENSITY DECREASED
  5. IBANDRONATE SODIUM [Concomitant]
  6. ADVAIR DISKUS 100/50 [Concomitant]
  7. COMBIVENT [Concomitant]

REACTIONS (2)
  - ARTHRALGIA [None]
  - HYPERSOMNIA [None]
